FAERS Safety Report 24997250 (Version 6)
Quarter: 2025Q3

REPORT INFORMATION
  Report Type: Report from Study
  Country: CA (occurrence: CA)
  Receive Date: 20250221
  Receipt Date: 20250729
  Transmission Date: 20251021
  Serious: Yes (Death, Hospitalization, Other)
  Sender: ABBVIE
  Company Number: CA-ABBVIE-6143581

PATIENT
  Age: 91 Year
  Sex: Male

DRUGS (1)
  1. LUPRON [Suspect]
     Active Substance: LEUPROLIDE ACETATE
     Indication: Prostate cancer
     Dosage: FORM STRENGTH: 22.5 MILLIGRAM, 22.5 MG PRE-FILLED SYRINGE
     Route: 030
     Dates: start: 20200526, end: 20241113

REACTIONS (7)
  - Death [Fatal]
  - Hip fracture [Unknown]
  - Fall [Unknown]
  - Hospitalisation [Not Recovered/Not Resolved]
  - Prostate cancer [Unknown]
  - Illness [Unknown]
  - Emotional distress [Unknown]

NARRATIVE: CASE EVENT DATE: 20250620
